FAERS Safety Report 5310196-5 (Version None)
Quarter: 2007Q2

REPORT INFORMATION
  Report Type: 
  Country: None (occurrence: None)
  Receive Date: 20070427
  Receipt Date: 20070417
  Transmission Date: 20071010
  Serious: Yes (Hospitalization)
  Sender: FDA-Public Use
  Company Number: 2007CG00631

PATIENT
  Age: 84 Year
  Sex: Female

DRUGS (4)
  1. NEXIUM [Suspect]
     Route: 048
  2. PRETERAX [Suspect]
     Route: 048
     Dates: end: 20060722
  3. REQUIP [Suspect]
     Route: 048
  4. SINEMET [Suspect]
     Dosage: 25 + 100 MG DAILY
     Route: 048

REACTIONS (2)
  - DEHYDRATION [None]
  - HYPONATRAEMIA [None]
